FAERS Safety Report 21902209 (Version 1)
Quarter: 2023Q1

REPORT INFORMATION
  Report Type: Spontaneous
  Country: CH (occurrence: CH)
  Receive Date: 20230124
  Receipt Date: 20230124
  Transmission Date: 20230418
  Serious: Yes (Hospitalization, Other)
  Sender: FDA-Public Use
  Company Number: CH-ALKEM LABORATORIES LIMITED-CH-ALKEM-2023-00313

PATIENT

DRUGS (2)
  1. LEVETIRACETAM [Suspect]
     Active Substance: LEVETIRACETAM
     Indication: Neonatal seizure
     Dosage: 30 MILLIGRAM/KILOGRAM (INFUSION OVER 15 MINUTES)
     Route: 065
  2. LEVETIRACETAM [Suspect]
     Active Substance: LEVETIRACETAM
     Dosage: 15 MILLIGRAM/KILOGRAM, BID (MAINTENANCE LOADING DOSE)
     Route: 042

REACTIONS (3)
  - Respiratory depression [Unknown]
  - Hypotension [Unknown]
  - Sedation [Unknown]
